FAERS Safety Report 8547855-7 (Version None)
Quarter: 2012Q3

REPORT INFORMATION
  Report Type: 
  Country: None (occurrence: None)
  Receive Date: 20120727
  Receipt Date: 20120126
  Transmission Date: 20120928
  Serious: Yes (Other)
  Sender: FDA-Public Use
  Company Number: US-ASTRAZENECA-2011SE66137

PATIENT
  Age: 45 Year
  Sex: Female
  Weight: 65.8 kg

DRUGS (7)
  1. SEROQUEL [Suspect]
     Indication: DEPRESSION
     Dosage: HALF TABLET IN THE EVENING
     Route: 048
     Dates: start: 20110101
  2. CARBETROL [Concomitant]
     Indication: CONVULSION
     Dosage: 3 TABLETS IN THE MORNING AND 3 TABLETS IN THE EVENING
     Route: 048
  3. SEROQUEL [Suspect]
     Route: 048
  4. CARBETROL [Concomitant]
     Route: 048
  5. SYNTHROID [Concomitant]
     Indication: THYROID DISORDER
     Route: 048
  6. VALIUM [Concomitant]
     Indication: CONVULSION
  7. CENTROID [Concomitant]
     Indication: THYROID DISORDER

REACTIONS (4)
  - ADVERSE DRUG REACTION [None]
  - DRUG INEFFECTIVE [None]
  - WRONG TECHNIQUE IN DRUG USAGE PROCESS [None]
  - PARTIAL SEIZURES [None]
